FAERS Safety Report 26155078 (Version 1)
Quarter: 2025Q4

REPORT INFORMATION
  Report Type: Spontaneous
  Country: EU (occurrence: EU)
  Receive Date: 20251215
  Receipt Date: 20251215
  Transmission Date: 20260117
  Serious: Yes (Other)
  Sender: AUROBINDO
  Company Number: EU-LRB-01099696

PATIENT
  Age: 73 Year
  Sex: Male
  Weight: 83 kg

DRUGS (1)
  1. PRAVASTATIN SODIUM [Suspect]
     Active Substance: PRAVASTATIN SODIUM
     Indication: Hypercholesterolaemia
     Dosage: 20 MILLIGRAM, ONCE A DAY (1 TIME DAILY, 1 BEFORE BED)
     Route: 061
     Dates: start: 20230512, end: 20251113

REACTIONS (2)
  - Diabetes mellitus inadequate control [Recovered/Resolved]
  - Muscle discomfort [Recovered/Resolved]
